FAERS Safety Report 10429676 (Version 4)
Quarter: 2015Q4

REPORT INFORMATION
  Report Type: Spontaneous
  Country: US (occurrence: US)
  Receive Date: 20140904
  Receipt Date: 20151006
  Transmission Date: 20160304
  Serious: Yes (Other)
  Sender: FDA-Public Use
  Company Number: PHEH2014US017539

PATIENT
  Age: 57 Year
  Sex: Male

DRUGS (3)
  1. BYSTOLIC [Concomitant]
     Active Substance: NEBIVOLOL HYDROCHLORIDE
     Indication: PRODUCT USED FOR UNKNOWN INDICATION
     Dosage: 10 MG, QD
     Route: 065
  2. TEKTURNA [Suspect]
     Active Substance: ALISKIREN HEMIFUMARATE
     Indication: PRODUCT USED FOR UNKNOWN INDICATION
     Dosage: 325 MG, QD
     Route: 065
     Dates: start: 20090114
  3. HYDROCHLOROTHIAZIDE. [Concomitant]
     Active Substance: HYDROCHLOROTHIAZIDE
     Indication: PRODUCT USED FOR UNKNOWN INDICATION
     Route: 065
     Dates: start: 20090114

REACTIONS (78)
  - Nephrotic syndrome [Unknown]
  - Staphylococcal infection [Unknown]
  - Intra-abdominal pressure increased [Unknown]
  - Pneumonia [Unknown]
  - Weight decreased [Unknown]
  - Vascular compression [Unknown]
  - Bursitis [Unknown]
  - Haemoptysis [Unknown]
  - Hypokalaemia [Unknown]
  - Atelectasis [Unknown]
  - Gastric ulcer [Unknown]
  - Hypoalbuminaemia [Unknown]
  - Hyperparathyroidism secondary [Unknown]
  - Local swelling [Unknown]
  - Swelling face [Unknown]
  - Arthralgia [Unknown]
  - Dyspnoea [Unknown]
  - Abdominal pain [Unknown]
  - Atrioventricular block complete [Unknown]
  - Bacteraemia [Unknown]
  - Accelerated hypertension [Unknown]
  - Chronic kidney disease [Unknown]
  - Upper respiratory tract infection [Unknown]
  - Rhinitis [Unknown]
  - Visual impairment [Unknown]
  - Lung infiltration [Unknown]
  - Diastolic dysfunction [Unknown]
  - Weight increased [Unknown]
  - Contusion [Unknown]
  - Left ventricular hypertrophy [Unknown]
  - Peripheral vascular disorder [Unknown]
  - Glomerulosclerosis [Unknown]
  - Aortic stenosis [Unknown]
  - Herpes simplex [Unknown]
  - Sinus headache [Unknown]
  - Epistaxis [Unknown]
  - Hiatus hernia [Unknown]
  - Tricuspid valve incompetence [Unknown]
  - Skin ulcer [Unknown]
  - Decubitus ulcer [Unknown]
  - Arteriosclerosis [Unknown]
  - Gastrooesophageal reflux disease [Unknown]
  - Decreased appetite [Unknown]
  - Pulmonary oedema [Unknown]
  - Respiratory failure [Unknown]
  - Clostridium difficile colitis [Unknown]
  - Sinus node dysfunction [Unknown]
  - Cardiac failure congestive [Unknown]
  - Hepatitis C [Unknown]
  - Hypoxia [Unknown]
  - Aortic valve incompetence [Unknown]
  - Pain in extremity [Unknown]
  - Left atrial dilatation [Unknown]
  - Osteomyelitis [Unknown]
  - Haemorrhage [Unknown]
  - Lymphadenopathy [Unknown]
  - Renal haematoma [Unknown]
  - Mitral valve incompetence [Unknown]
  - Pleural effusion [Unknown]
  - Depression [Unknown]
  - Anaemia [Unknown]
  - Cardiac murmur [Unknown]
  - Diarrhoea [Unknown]
  - Pharyngitis [Unknown]
  - Night sweats [Unknown]
  - Dyskinesia [Unknown]
  - Feeling abnormal [Unknown]
  - Haematocrit decreased [Unknown]
  - Diabetic nephropathy [Unknown]
  - Renal osteodystrophy [Unknown]
  - Sepsis [Unknown]
  - Vitamin D deficiency [Unknown]
  - Hyperhidrosis [Unknown]
  - Cardiomegaly [Unknown]
  - Gastrointestinal infection [Unknown]
  - Coronary artery disease [Unknown]
  - Cardiomyopathy [Unknown]
  - Hypotension [Unknown]

NARRATIVE: CASE EVENT DATE: 20090409
